FAERS Safety Report 9108775 (Version 1)
Quarter: 2013Q1

REPORT INFORMATION
  Report Type: Spontaneous
  Country: DE (occurrence: DE)
  Receive Date: 20130222
  Receipt Date: 20130222
  Transmission Date: 20140127
  Serious: Yes (Other)
  Sender: FDA-Public Use
  Company Number: DE-009507513-1302DEU008364

PATIENT
  Age: 48 Year
  Sex: Male

DRUGS (2)
  1. REMERGIL SOLTAB [Suspect]
     Indication: DEPRESSION
     Dosage: 30 MG, QD
     Route: 048
     Dates: start: 2005
  2. MIRTAZAPINE [Suspect]
     Dosage: 45 MG, QD
     Route: 048
     Dates: start: 201109

REACTIONS (1)
  - Colour blindness [Not Recovered/Not Resolved]
